FAERS Safety Report 11318924 (Version 2)
Quarter: 2015Q3

REPORT INFORMATION
  Report Type: Spontaneous
  Country: US (occurrence: US)
  Receive Date: 20150729
  Receipt Date: 20150812
  Transmission Date: 20151125
  Serious: No
  Sender: FDA-Public Use
  Company Number: US-AMGEN-USASP2015074942

PATIENT
  Age: 63 Year
  Sex: Female

DRUGS (4)
  1. ENBREL [Suspect]
     Active Substance: ETANERCEPT
     Indication: ANKYLOSING SPONDYLITIS
     Dosage: UNK
     Route: 065
     Dates: start: 201507
  2. ENBREL [Suspect]
     Active Substance: ETANERCEPT
     Dosage: UNK
     Route: 065
  3. FOLIC ACID. [Concomitant]
     Active Substance: FOLIC ACID
     Dosage: UNK
  4. METHOTREXATE [Concomitant]
     Active Substance: METHOTREXATE
     Dosage: UNK

REACTIONS (16)
  - Dry skin [Unknown]
  - Rash papular [Unknown]
  - Fatigue [Unknown]
  - Feeling abnormal [Unknown]
  - Injection site discolouration [Unknown]
  - Asthenia [Unknown]
  - Injection site erythema [Unknown]
  - Local swelling [Unknown]
  - Bite [Unknown]
  - Rash erythematous [Unknown]
  - Rash macular [Unknown]
  - Eye irritation [Unknown]
  - Stress [Unknown]
  - Injection site reaction [Unknown]
  - Headache [Unknown]
  - Injection site swelling [Unknown]

NARRATIVE: CASE EVENT DATE: 2015
